FAERS Safety Report 7291973-0 (Version None)
Quarter: 2011Q1

REPORT INFORMATION
  Report Type: 
  Country: None (occurrence: None)
  Receive Date: 20110214
  Receipt Date: 20110207
  Transmission Date: 20110831
  Serious: Yes (Other)
  Sender: FDA-Public Use
  Company Number: DE-BRISTOL-MYERS SQUIBB COMPANY-15535123

PATIENT
  Sex: Female

DRUGS (3)
  1. DOLORMIN [Suspect]
     Dosage: 2.5 TABLETS OF DOLORMIN 400 (UNIT NOT SPECIFIED) TOTAL DOSE: 1000MG(400*2.5)
  2. ABILIFY [Suspect]
     Dosage: 10MG TABLET NO OF TAB: 1
  3. CANNABIS [Suspect]
     Dates: start: 20110107

REACTIONS (2)
  - PARAESTHESIA [None]
  - DRUG ABUSE [None]
